FAERS Safety Report 15590670 (Version 1)
Quarter: 2018Q4

REPORT INFORMATION
  Report Type: Spontaneous
  Country: AT (occurrence: AT)
  Receive Date: 20181106
  Receipt Date: 20181106
  Transmission Date: 20190205
  Serious: Yes (Death, Congenital Anomaly, Other)
  Sender: FDA-Public Use
  Company Number: AT-GLAXOSMITHKLINE-AT2018GSK201640

PATIENT
  Sex: Male

DRUGS (3)
  1. ATOSIBAN [Suspect]
     Active Substance: ATOSIBAN
     Indication: INFECTION PROPHYLAXIS
     Route: 064
  2. VALACICLOVIR [Suspect]
     Active Substance: VALACYCLOVIR HYDROCHLORIDE
     Indication: CYTOMEGALOVIRUS INFECTION
     Dosage: 2 G, QID
     Route: 064
  3. BETAMETHASONE. [Suspect]
     Active Substance: BETAMETHASONE
     Indication: MATERNAL THERAPY TO ENHANCE FOETAL LUNG MATURITY
     Route: 064

REACTIONS (9)
  - Death [Fatal]
  - Hepatomegaly [Unknown]
  - Hepatic calcification [Unknown]
  - Brain injury [Unknown]
  - Congenital brain damage [Unknown]
  - Foetal exposure during pregnancy [Unknown]
  - Off label use [Unknown]
  - Foetal growth restriction [Unknown]
  - Condition aggravated [Unknown]
